FAERS Safety Report 5501356-9 (Version None)
Quarter: 2007Q4

REPORT INFORMATION
  Report Type: 
  Country: None (occurrence: None)
  Receive Date: 20071022
  Receipt Date: 20070517
  Transmission Date: 20080405
  Serious: Yes (Hospitalization)
  Sender: FDA-Public Use
  Company Number: 153255USA

PATIENT
  Age: 80 Year
  Sex: Female

DRUGS (2)
  1. CLONAZEPAM [Suspect]
     Indication: RESTLESS LEGS SYNDROME
     Dosage: 4 MG, (2 MG, 2 IN 1 D), ORAL
     Route: 048
     Dates: start: 20070221, end: 20070221
  2. SERETIDE [Concomitant]

REACTIONS (2)
  - PAIN IN EXTREMITY [None]
  - SYNCOPE [None]
